FAERS Safety Report 7159533-X (Version None)
Quarter: 2010Q4

REPORT INFORMATION
  Report Type: 
  Country: None (occurrence: None)
  Receive Date: 20101214
  Receipt Date: 20100917
  Transmission Date: 20110411
  Serious: No
  Sender: FDA-Public Use
  Company Number: US-ASTRAZENECA-2010SE43873

PATIENT
  Age: 26358 Day
  Sex: Male
  Weight: 83 kg

DRUGS (4)
  1. CRESTOR [Suspect]
     Route: 048
     Dates: start: 20050101
  2. ASPIRIN [Concomitant]
  3. BYSTOLIC [Concomitant]
     Indication: HYPERTENSION
  4. CEREFOLIN NAC [Concomitant]

REACTIONS (3)
  - OROPHARYNGEAL PAIN [None]
  - PHARYNGEAL OEDEMA [None]
  - THROAT IRRITATION [None]
